FAERS Safety Report 5762212-4 (Version None)
Quarter: 2008Q2

REPORT INFORMATION
  Report Type: 
  Country: None (occurrence: None)
  Receive Date: 20080609
  Receipt Date: 20080602
  Transmission Date: 20081010
  Serious: Yes (Other)
  Sender: FDA-Public Use
  Company Number: US-BAYER-200824631NA

PATIENT
  Age: 18 Year
  Sex: Female
  Weight: 76 kg

DRUGS (2)
  1. YAZ [Suspect]
     Indication: CONTRACEPTION
     Dates: start: 20080301
  2. HYDROXYCUT [Concomitant]

REACTIONS (4)
  - ALOPECIA [None]
  - BACK PAIN [None]
  - CHEST PAIN [None]
  - CHOLELITHIASIS [None]
